FAERS Safety Report 17131099 (Version 1)
Quarter: 2019Q4

REPORT INFORMATION
  Report Type: Spontaneous
  Country: DE (occurrence: DE)
  Receive Date: 20191209
  Receipt Date: 20191209
  Transmission Date: 20200122
  Serious: Yes (Hospitalization, Other)
  Sender: FDA-Public Use
  Company Number: DE-NOVOPROD-699651

PATIENT
  Age: 35 Year
  Sex: Female

DRUGS (9)
  1. OVITRELLE [Suspect]
     Active Substance: CHORIOGONADOTROPIN ALFA
     Indication: ASSISTED REPRODUCTIVE TECHNOLOGY
     Dosage: UNK
     Route: 065
  2. ESTRIFAM [Suspect]
     Active Substance: ESTRADIOL
     Indication: ASSISTED REPRODUCTIVE TECHNOLOGY
     Dosage: 2 MG
     Route: 065
  3. GONASI HP [Suspect]
     Active Substance: GONADOTROPHIN, CHORIONIC
     Indication: ASSISTED REPRODUCTIVE TECHNOLOGY
     Dosage: 100 IU
     Route: 065
  4. PRIMOLUT-NOR [Suspect]
     Active Substance: NORETHINDRONE ACETATE
     Indication: ASSISTED REPRODUCTIVE TECHNOLOGY
     Dosage: 5 MG
     Route: 065
  5. PROGESTAN [Suspect]
     Active Substance: PROGESTERONE
     Indication: ASSISTED REPRODUCTIVE TECHNOLOGY
     Dosage: UNK
     Route: 065
  6. CETROTIDE [Suspect]
     Active Substance: CETRORELIX ACETATE
     Indication: ASSISTED REPRODUCTIVE TECHNOLOGY
     Dosage: UNK
     Route: 065
  7. PERGOVERIS [Suspect]
     Active Substance: FOLLITROPIN\LUTROPIN ALFA
     Indication: ASSISTED REPRODUCTIVE TECHNOLOGY
     Dosage: UNK
     Route: 065
  8. TRIPTOFEM [Suspect]
     Active Substance: TRIPTORELIN ACETATE
     Indication: ASSISTED REPRODUCTIVE TECHNOLOGY
     Dosage: 0.1 ML
     Route: 065
  9. FOLSAEURE [Concomitant]
     Active Substance: FOLIC ACID
     Indication: ASSISTED REPRODUCTIVE TECHNOLOGY
     Dosage: 5 MG
     Route: 065

REACTIONS (2)
  - Ovarian hyperstimulation syndrome [Unknown]
  - Off label use [Unknown]

NARRATIVE: CASE EVENT DATE: 20190814
